FAERS Safety Report 12104261 (Version 1)
Quarter: 2016Q1

REPORT INFORMATION
  Report Type: Spontaneous
  Country: US (occurrence: US)
  Receive Date: 20160223
  Receipt Date: 20160223
  Transmission Date: 20160526
  Serious: Yes (Other)
  Sender: FDA-Public Use
  Company Number: US-BAYER-2016-030641

PATIENT
  Age: 92 Year
  Sex: Male
  Weight: 95.24 kg

DRUGS (7)
  1. BIOTIN [Concomitant]
     Active Substance: BIOTIN
  2. COREG [Concomitant]
     Active Substance: CARVEDILOL
  3. LOTREL [Concomitant]
     Active Substance: AMLODIPINE BESYLATE\BENAZEPRIL HYDROCHLORIDE
  4. DIOVAN [Concomitant]
     Active Substance: VALSARTAN
  5. VALSARTAN. [Concomitant]
     Active Substance: VALSARTAN
  6. ALEVE [Suspect]
     Active Substance: NAPROXEN SODIUM
     Indication: ARTHRALGIA
     Dosage: 1 UNIT DOSE EVERY 12 HOURS
     Dates: start: 20160209, end: 20160212
  7. AMLODIPINE [Concomitant]
     Active Substance: AMLODIPINE BESYLATE

REACTIONS (2)
  - Rectal haemorrhage [Recovered/Resolved]
  - Constipation [None]

NARRATIVE: CASE EVENT DATE: 20160212
